FAERS Safety Report 11497954 (Version 1)
Quarter: 2015Q3

REPORT INFORMATION
  Report Type: Spontaneous
  Country: US (occurrence: US)
  Receive Date: 20150911
  Receipt Date: 20150911
  Transmission Date: 20151125
  Serious: No
  Sender: FDA-Public Use
  Company Number: US-GLAXOSMITHKLINE-US2015GSK118386

PATIENT
  Age: 46 Year
  Sex: Female

DRUGS (17)
  1. ARIPIPRAZOLE. [Concomitant]
     Active Substance: ARIPIPRAZOLE
  2. LEVOFLOXACIN. [Concomitant]
     Active Substance: LEVOFLOXACIN
  3. Q-PAP [Concomitant]
     Active Substance: ACETAMINOPHEN
  4. VOTRIENT [Suspect]
     Active Substance: PAZOPANIB HYDROCHLORIDE
     Indication: NEOPLASM MALIGNANT
     Dosage: 800 MG, QD
     Route: 048
     Dates: start: 20150722
  5. CLINDAMYCIN CAPSULE [Concomitant]
  6. PROCHLORPERAZINE TABLET [Concomitant]
  7. AMOXICLAV TABLET [Concomitant]
  8. BUSPIRONE HYDROCHLORIDE TABLET [Concomitant]
  9. LAMOTRIGINE DISPERSIBLE TABLET [Concomitant]
     Active Substance: LAMOTRIGINE
  10. GABAPENTIN. [Concomitant]
     Active Substance: GABAPENTIN
  11. CEPHALEXIN CAPSULE [Concomitant]
  12. DOCQLACE [Concomitant]
     Active Substance: DOCUSATE SODIUM
  13. ESCITALOPRAM [Concomitant]
     Active Substance: ESCITALOPRAM OXALATE
  14. METOPROLOL [Concomitant]
     Active Substance: METOPROLOL
  15. MORPHINE SULPHATE TABLET [Concomitant]
  16. ONDANSETRON TABLET [Concomitant]
     Active Substance: ONDANSETRON
  17. VYVANSE [Concomitant]
     Active Substance: LISDEXAMFETAMINE DIMESYLATE

REACTIONS (2)
  - Hot flush [Unknown]
  - Diarrhoea [Unknown]

NARRATIVE: CASE EVENT DATE: 20150722
